FAERS Safety Report 4332637-2 (Version None)
Quarter: 2004Q2

REPORT INFORMATION
  Report Type: 
  Country: None (occurrence: None)
  Receive Date: 20040406
  Receipt Date: 20040331
  Transmission Date: 20050107
  Serious: Yes (Other)
  Sender: FDA-Public Use
  Company Number: PHNU2004DE01423

PATIENT
  Age: 52 Year
  Sex: Female

DRUGS (2)
  1. CAFERGOT [Suspect]
     Indication: MIGRAINE
     Dosage: MAX 4X /MONTH FOR 1-2 DAYS
     Route: 048
     Dates: end: 20030701
  2. BETA BLOCKING AGENTS [Concomitant]

REACTIONS (2)
  - ENCEPHALOPATHY [None]
  - RETINAL VASCULAR THROMBOSIS [None]
